FAERS Safety Report 21816806 (Version 2)
Quarter: 2023Q1

REPORT INFORMATION
  Report Type: Spontaneous
  Country: US (occurrence: US)
  Receive Date: 20230104
  Receipt Date: 20230228
  Transmission Date: 20230418
  Serious: No
  Sender: FDA-Public Use
  Company Number: US-BRISTOL-MYERS SQUIBB COMPANY-2023-000697

PATIENT
  Age: 63 Year
  Sex: Female

DRUGS (2)
  1. ORENCIA [Suspect]
     Active Substance: ABATACEPT
     Indication: Psoriatic arthropathy
     Route: 058
     Dates: start: 202212
  2. ORENCIA [Suspect]
     Active Substance: ABATACEPT
     Dosage: FREQUENCY: EVERY OTHER WEEK
     Route: 058
     Dates: start: 20221214

REACTIONS (7)
  - Drug ineffective [Unknown]
  - Headache [Unknown]
  - Diarrhoea [Unknown]
  - Nausea [Unknown]
  - Off label use [Unknown]
  - Oropharyngeal pain [Unknown]
  - Fatigue [Unknown]
